FAERS Safety Report 4816658-9 (Version None)
Quarter: 2005Q4

REPORT INFORMATION
  Report Type: 
  Country: None (occurrence: None)
  Receive Date: 20051028
  Receipt Date: 20050518
  Transmission Date: 20060501
  Serious: Yes (Other)
  Sender: FDA-Public Use
  Company Number: 2005079276

PATIENT
  Sex: Male

DRUGS (1)
  1. VIAGRA [Suspect]
     Indication: ILL-DEFINED DISORDER

REACTIONS (5)
  - CONDITION AGGRAVATED [None]
  - PROCTITIS [None]
  - PROSTATE CANCER [None]
  - RADIATION INJURY [None]
  - RECTAL HAEMORRHAGE [None]
